FAERS Safety Report 17750278 (Version 11)
Quarter: 2021Q3

REPORT INFORMATION
  Report Type: Spontaneous
  Country: US (occurrence: US)
  Receive Date: 20200506
  Receipt Date: 20210702
  Transmission Date: 20211014
  Serious: Yes (Other)
  Sender: FDA-Public Use
  Company Number: US-PFIZER INC-2019408356

PATIENT
  Age: 43 Year
  Sex: Male
  Weight: 127.01 kg

DRUGS (7)
  1. METOPROLOL. [Concomitant]
     Active Substance: METOPROLOL
     Dosage: 25 MG, 2X/DAY
  2. DILANTIN [Suspect]
     Active Substance: PHENYTOIN
     Indication: SEIZURE
     Dosage: UNK
     Dates: start: 2003, end: 2003
  3. AMLODIPINE [Concomitant]
     Active Substance: AMLODIPINE BESYLATE
     Dosage: 10 MG, DAILY (5 MG, TWO A DAY)
  4. PRADAXA [Concomitant]
     Active Substance: DABIGATRAN ETEXILATE MESYLATE
     Dosage: 300 MG, DAILY (150 MG CAPSULE, TWO PILLS A DAY)
  5. DILANTIN [Suspect]
     Active Substance: PHENYTOIN
     Dosage: 100 MG, 3X/DAY
     Route: 048
  6. DILANTIN [Suspect]
     Active Substance: PHENYTOIN
     Dosage: 700 MG, DAILY (3 CAPSULES AT 9AM, 2 CAPSULES AT 3PM, 2 CAPSULES AT 9PM.)
     Dates: start: 20040102
  7. DILANTIN [Suspect]
     Active Substance: PHENYTOIN
     Dosage: 700 MG, DAILY ( 3 CAPSULE IN THE MORNING, 2 CAPSULES IN THE AFTERNOON, AND 2 CAPSULE AT NIGHT)
     Route: 048

REACTIONS (5)
  - Drug dependence [Not Recovered/Not Resolved]
  - Prescribed overdose [Unknown]
  - Condition aggravated [Unknown]
  - Memory impairment [Unknown]
  - Product dispensing error [Unknown]
